FAERS Safety Report 8808919 (Version 1)
Quarter: 2012Q4

REPORT INFORMATION
  Report Type: Spontaneous
  Country: US (occurrence: None)
  Receive Date: 20120920
  Receipt Date: 20120920
  Transmission Date: 20130627
  Serious: Yes (Life-Threatening, Hospitalization)
  Sender: FDA-Public Use
  Company Number: None

PATIENT
  Age: 6 Year
  Sex: Male
  Weight: 19.05 kg

DRUGS (1)
  1. MIRALAX [Suspect]
     Indication: CONSTIPATION
     Route: 048

REACTIONS (8)
  - Vomiting [None]
  - Retching [None]
  - Diarrhoea [None]
  - Pallor [None]
  - Asthenia [None]
  - Hypokinesia [None]
  - Loss of consciousness [None]
  - Respiratory arrest [None]
